FAERS Safety Report 5341181-5 (Version None)
Quarter: 2007Q2

REPORT INFORMATION
  Report Type: 
  Country: None (occurrence: None)
  Receive Date: 20070530
  Receipt Date: 20070515
  Transmission Date: 20071010
  Serious: Yes (Other)
  Sender: FDA-Public Use
  Company Number: 070516-0000516

PATIENT
  Age: 5 Year
  Sex: Male

DRUGS (4)
  1. ELSPAR [Suspect]
     Indication: T-CELL LYMPHOMA
     Dosage: 6000 IU;TIW, 9 DOSES
  2. PREDNISONE TAB [Suspect]
     Indication: T-CELL LYMPHOMA
     Dosage: 60 MG/M**2;1X;
  3. VINCRISTINE [Suspect]
     Indication: T-CELL LYMPHOMA
     Dosage: 1.5 MG/M**2;QW X 4 DOSES
  4. DAUNORUBICIN HCL [Suspect]
     Indication: T-CELL LYMPHOMA
     Dosage: 25 MG/M**2;QW X 4 DOSES

REACTIONS (9)
  - FUNGAL SEPSIS [None]
  - HEPATIC STEATOSIS [None]
  - NEUTROPENIA [None]
  - PANCREATITIS [None]
  - PERIRENAL HAEMATOMA [None]
  - PNEUMONIA [None]
  - RESPIRATORY FAILURE [None]
  - RETROPERITONEAL HAEMORRHAGE [None]
  - SEPSIS [None]
